FAERS Safety Report 9173187 (Version 1)
Quarter: 2013Q1

REPORT INFORMATION
  Report Type: Report from Study
  Country: US (occurrence: US)
  Receive Date: 20130320
  Receipt Date: 20130320
  Transmission Date: 20140127
  Serious: Yes (Hospitalization)
  Sender: FDA-Public Use
  Company Number: US-JNJFOC-20110309691

PATIENT
  Age: 84 Year
  Sex: Female
  Weight: 68 kg

DRUGS (18)
  1. GOLIMUMAB [Suspect]
     Indication: RHEUMATOID ARTHRITIS
     Dates: start: 20100125
  2. GOLIMUMAB [Suspect]
     Indication: RHEUMATOID ARTHRITIS
     Dates: start: 20110131
  3. GOLIMUMAB [Suspect]
     Indication: RHEUMATOID ARTHRITIS
     Dates: start: 20110321
  4. AMBIEN [Concomitant]
     Indication: SLEEP DISORDER
     Route: 048
     Dates: start: 20101201
  5. SYNTHROID [Concomitant]
     Indication: HYPOTHYROIDISM
     Route: 048
     Dates: start: 1995
  6. VITAMIN B12 [Concomitant]
     Indication: MEDICAL DIET
     Route: 048
     Dates: start: 19960129
  7. MECLIZINE [Concomitant]
     Indication: VERTIGO
     Route: 048
     Dates: start: 20080509
  8. ASACOL [Concomitant]
     Indication: COLITIS ULCERATIVE
     Route: 048
     Dates: start: 2000
  9. MULTIPLE VITAMINS [Concomitant]
     Indication: MEDICAL DIET
     Route: 048
     Dates: start: 2001
  10. OSCAL NOS [Concomitant]
     Indication: MEDICAL DIET
     Dates: start: 2001
  11. FOLIC ACID [Concomitant]
     Indication: NUTRITIONAL SUPPLEMENTATION
     Route: 048
     Dates: start: 200704
  12. GENTEAL EYE DROPS [Concomitant]
     Indication: DRY EYE
     Route: 047
     Dates: start: 2008
  13. CETAPHIL CREAM [Concomitant]
     Indication: DRY SKIN
     Route: 061
     Dates: start: 200906
  14. BAYER EXTRA STRENGTH BACK AND BODY PAIN [Concomitant]
     Indication: RHEUMATOID ARTHRITIS
     Route: 048
     Dates: start: 20101201
  15. HYDROCODONE [Concomitant]
     Route: 048
     Dates: start: 20110218
  16. TYLENOL ARTHRITIS [Concomitant]
     Indication: RHEUMATOID ARTHRITIS
     Route: 048
     Dates: start: 2002
  17. CIPRO [Concomitant]
     Route: 048
     Dates: start: 20100125
  18. VOLTAREN [Concomitant]
     Indication: CYST
     Route: 061
     Dates: start: 20100323

REACTIONS (3)
  - Spinal compression fracture [Not Recovered/Not Resolved]
  - Intervertebral discitis [Not Recovered/Not Resolved]
  - Infective spondylitis [Not Recovered/Not Resolved]
